FAERS Safety Report 4608958-2 (Version None)
Quarter: 2005Q1

REPORT INFORMATION
  Report Type: 
  Country: None (occurrence: None)
  Receive Date: 20050310
  Receipt Date: 20050302
  Transmission Date: 20050727
  Serious: Yes (Hospitalization)
  Sender: FDA-Public Use
  Company Number: TIF2004A00006

PATIENT
  Age: 60 Year
  Sex: Female

DRUGS (2)
  1. LANSOX (LANSOPRAZOLE) CAPSULES [Suspect]
     Indication: NAUSEA
     Dosage: 15 MG (15 MG, 1 IN 1 D)
     Route: 048
     Dates: start: 20030716, end: 20030801
  2. GLEEVEC [Suspect]
     Indication: PALLIATIVE CARE
     Dosage: 400 MG (100 MG, 1 IN 1 D)
     Route: 048
     Dates: start: 20030516, end: 20030819

REACTIONS (5)
  - ANGIONEUROTIC OEDEMA [None]
  - DRUG INTERACTION [None]
  - MUCOSAL INFLAMMATION [None]
  - STEVENS-JOHNSON SYNDROME [None]
  - STOMATITIS [None]
